FAERS Safety Report 4432367-2 (Version None)
Quarter: 2004Q3

REPORT INFORMATION
  Report Type: 
  Country: None (occurrence: None)
  Receive Date: 20040820
  Receipt Date: 20040806
  Transmission Date: 20050211
  Serious: Yes (Death, Hospitalization)
  Sender: FDA-Public Use
  Company Number: THYR-10187

PATIENT
  Age: 54 Year
  Sex: Male

DRUGS (1)
  1. THYROGEN [Suspect]
     Indication: DIAGNOSTIC PROCEDURE
     Dosage: 0.9 MG QD IM
     Route: 030
     Dates: start: 20021229, end: 20021229

REACTIONS (1)
  - DEATH [None]
